FAERS Safety Report 21918338 (Version 2)
Quarter: 2023Q2

REPORT INFORMATION
  Report Type: Report from Study
  Country: FR (occurrence: FR)
  Receive Date: 20230127
  Receipt Date: 20230629
  Transmission Date: 20230721
  Serious: Yes (Other)
  Sender: FDA-Public Use
  Company Number: FR-MYLANLABS-2023M1002744

PATIENT
  Sex: Male

DRUGS (6)
  1. ANASTROZOLE [Suspect]
     Active Substance: ANASTROZOLE
     Indication: Gynaecomastia
     Dosage: UNK
     Route: 065
  2. ANASTROZOLE [Suspect]
     Active Substance: ANASTROZOLE
     Indication: Oestradiol increased
  3. EXEMESTANE [Suspect]
     Active Substance: EXEMESTANE
     Indication: Gynaecomastia
     Dosage: UNK  12.5 OR 25 MG
     Route: 065
  4. LETROZOLE [Suspect]
     Active Substance: LETROZOLE
     Indication: Product used for unknown indication
     Dosage: UNK
     Route: 065
  5. TAMOXIFEN [Suspect]
     Active Substance: TAMOXIFEN
     Indication: Blood testosterone
     Dosage: 20 MILLIGRAM, ONCE A DAY
     Route: 065
  6. TAMOXIFEN [Suspect]
     Active Substance: TAMOXIFEN
     Indication: Gynaecomastia
     Dosage: UNK (10 TO 40 MG PER DAY)
     Route: 065

REACTIONS (18)
  - Urticaria [Unknown]
  - Palpitations [Unknown]
  - Haematuria [Unknown]
  - Performance enhancing product use [Unknown]
  - Intentional product misuse [Unknown]
  - Anxiety [Unknown]
  - Libido decreased [Unknown]
  - Arthralgia [Unknown]
  - Diarrhoea [Unknown]
  - Dizziness [Unknown]
  - Affective disorder [Unknown]
  - Hot flush [Unknown]
  - Headache [Unknown]
  - Asthenia [Unknown]
  - Acne [Unknown]
  - Visual impairment [Unknown]
  - Abdominal pain upper [Unknown]
  - Insomnia [Unknown]
